FAERS Safety Report 7793156-4 (Version None)
Quarter: 2011Q4

REPORT INFORMATION
  Report Type: 
  Country: None (occurrence: None)
  Receive Date: 20111003
  Receipt Date: 20110928
  Transmission Date: 20120403
  Serious: Yes (Hospitalization)
  Sender: FDA-Public Use
  Company Number: US-PFIZER INC-2007096295

PATIENT
  Sex: Male
  Weight: 72 kg

DRUGS (20)
  1. ASPIRIN [Concomitant]
     Route: 048
     Dates: start: 20071001
  2. HYDROCHLOROTHIAZIDE [Concomitant]
     Route: 048
     Dates: start: 20041101
  3. VITAMIN B-12 [Concomitant]
     Route: 048
     Dates: start: 20070401
  4. ATIVAN [Concomitant]
     Route: 048
     Dates: start: 20070701
  5. ACETAMINOPHEN AND HYDROCODONE BITARTRATE [Concomitant]
     Route: 048
     Dates: start: 20070401
  6. LEUCOVORIN CALCIUM [Concomitant]
     Route: 042
     Dates: start: 20070829
  7. DOLASETRON [Concomitant]
     Route: 042
     Dates: start: 20070829
  8. SENNA [Concomitant]
     Route: 048
     Dates: start: 20071003
  9. OXYCODONE HCL [Concomitant]
     Route: 048
     Dates: start: 20071001
  10. TYLENOL W/ CODEINE [Concomitant]
     Route: 048
     Dates: start: 20071009
  11. OMEPRAZOLE [Concomitant]
     Route: 048
     Dates: start: 20071010
  12. LISINOPRIL [Concomitant]
     Route: 048
     Dates: start: 20041101
  13. FERROUS SULFATE TAB [Concomitant]
     Route: 048
     Dates: start: 20070401
  14. EFUDEX [Concomitant]
     Route: 042
     Dates: start: 20070829
  15. ASPIRIN [Concomitant]
     Route: 048
     Dates: start: 20050601
  16. SUNITINIB MALATE [Suspect]
     Indication: MALIGNANT NEOPLASM OF AMPULLA OF VATER
     Dosage: 25 MG, 1X/DAY
     Route: 048
     Dates: start: 20070829, end: 20071031
  17. DOCUSATE SODIUM [Concomitant]
     Route: 048
     Dates: start: 20070301
  18. DEXAMETHASONE [Concomitant]
     Route: 042
     Dates: start: 20070829
  19. OXALIPLATIN [Concomitant]
     Route: 042
     Dates: start: 20071010
  20. METOCLOPRAMIDE [Concomitant]
     Route: 048
     Dates: start: 20040401

REACTIONS (1)
  - ENTEROCUTANEOUS FISTULA [None]
